FAERS Safety Report 4971902-2 (Version None)
Quarter: 2006Q2

REPORT INFORMATION
  Report Type: 
  Country: None (occurrence: None)
  Receive Date: 20060413
  Receipt Date: 20050928
  Transmission Date: 20061013
  Serious: Yes (Death, Hospitalization)
  Sender: FDA-Public Use
  Company Number: US-MERCK-0509USA04924

PATIENT
  Age: 74 Year
  Sex: Female

DRUGS (6)
  1. VIOXX [Suspect]
     Route: 048
  2. PREMARIN [Concomitant]
     Route: 065
  3. MIACALCIN [Concomitant]
     Route: 065
  4. XALATAN [Concomitant]
     Route: 065
  5. ASPIRIN [Concomitant]
     Route: 048
  6. [THERAPY UNSPECIFIED] [Concomitant]
     Route: 065

REACTIONS (11)
  - ARTERIOSCLEROSIS [None]
  - CEREBRAL HAEMORRHAGE [None]
  - CEREBROVASCULAR ACCIDENT [None]
  - CHRONIC LYMPHOCYTIC LEUKAEMIA STAGE 0 [None]
  - HYDROCEPHALUS [None]
  - HYPOAESTHESIA [None]
  - LACERATION [None]
  - SMALL INTESTINAL RESECTION [None]
  - TACHYCARDIA [None]
  - TRANSIENT ISCHAEMIC ATTACK [None]
  - WEIGHT DECREASED [None]
